FAERS Safety Report 8217743-4 (Version None)
Quarter: 2012Q1

REPORT INFORMATION
  Report Type: 
  Country: None (occurrence: None)
  Receive Date: 20120314
  Receipt Date: 20120305
  Transmission Date: 20120608
  Serious: Yes (Death, Life-Threatening)
  Sender: FDA-Public Use
  Company Number: GER/GER/12/0023333

PATIENT
  Age: 70 Year
  Sex: Male

DRUGS (10)
  1. TILIDIN (VALORON N /00628301/) [Suspect]
     Indication: PRODUCT USED FOR UNKNOWN INDICATION
     Dosage: 208 MG, ORAL
     Route: 048
     Dates: end: 20111121
  2. METFORMIN HCL [Concomitant]
  3. ACETYLSALICYLIC ACID SRT [Suspect]
     Indication: PRODUCT USED FOR UNKNOWN INDICATION
     Dosage: 40 MG, ORAL
     Route: 048
     Dates: start: 20111120, end: 20111120
  4. PANTOZOL (PANTOPRAZOLE SODIUM SESQUIHYDRATE) [Concomitant]
  5. IBUPROFEN [Concomitant]
  6. MELPERONE (MELPERONE) [Suspect]
     Indication: PRODUCT USED FOR UNKNOWN INDICATION
     Dosage: 50-100 MG PER DAY, ORAL
     Route: 048
     Dates: end: 20111117
  7. MIRTAZAPINE [Suspect]
     Indication: PRODUCT USED FOR UNKNOWN INDICATION
     Dosage: 45 MG, ORAL
     Route: 048
  8. AMLODIPINE [Suspect]
     Indication: PRODUCT USED FOR UNKNOWN INDICATION
     Dosage: 5 MG, ORAL
     Route: 048
     Dates: end: 20111121
  9. RISPERDAL [Suspect]
     Indication: PRODUCT USED FOR UNKNOWN INDICATION
     Dosage: 1.5 MG, ORAL
     Route: 048
  10. JONOSTERIL (JONOSTERIL) [Concomitant]

REACTIONS (6)
  - HALLUCINATION, VISUAL [None]
  - DISORIENTATION [None]
  - INSOMNIA [None]
  - SCREAMING [None]
  - PNEUMONIA [None]
  - RESTLESSNESS [None]
